FAERS Safety Report 21566997 (Version 1)
Quarter: 2022Q4

REPORT INFORMATION
  Report Type: Spontaneous
  Country: US (occurrence: None)
  Receive Date: 20221107
  Receipt Date: 20221107
  Transmission Date: 20230113
  Serious: Yes (Life-Threatening, Other)
  Sender: FDA-Public Use
  Company Number: None

PATIENT
  Age: 8 Year
  Sex: Male
  Weight: 24.75 kg

DRUGS (5)
  1. QELBREE [Suspect]
     Active Substance: VILOXAZINE HYDROCHLORIDE
     Indication: Attention deficit hyperactivity disorder
     Dosage: OTHER QUANTITY : 30 CAPSULE(S);?FREQUENCY : AT BEDTIME;?
     Route: 048
     Dates: start: 20220119, end: 20221020
  2. ZOLOFT [Concomitant]
     Active Substance: SERTRALINE HYDROCHLORIDE
  3. CLONIDINE [Concomitant]
     Active Substance: CLONIDINE
  4. GUANFACINE [Concomitant]
     Active Substance: GUANFACINE
  5. MELATONIN [Concomitant]
     Active Substance: MELATONIN

REACTIONS (8)
  - Suicidal ideation [None]
  - Homicidal ideation [None]
  - Sleep disorder [None]
  - Middle insomnia [None]
  - Agitation [None]
  - Aggression [None]
  - Suicide attempt [None]
  - Intentional self-injury [None]

NARRATIVE: CASE EVENT DATE: 20221020
